FAERS Safety Report 6817864-4 (Version None)
Quarter: 2010Q3

REPORT INFORMATION
  Report Type: 
  Country: None (occurrence: None)
  Receive Date: 20100706
  Receipt Date: 20100701
  Transmission Date: 20110219
  Serious: Yes (Hospitalization, Disabling, Other)
  Sender: FDA-Public Use
  Company Number: US-MERCK-1003USA03103

PATIENT
  Age: 53 Year
  Sex: Female
  Weight: 68 kg

DRUGS (2)
  1. FOSAMAX [Suspect]
     Indication: OSTEOPOROSIS
     Route: 048
     Dates: start: 20040101, end: 20080101
  2. FOSAMAX [Suspect]
     Route: 048
     Dates: start: 20040101, end: 20090101

REACTIONS (28)
  - ADVERSE EVENT [None]
  - ANXIETY [None]
  - ATRIAL SEPTAL DEFECT [None]
  - BLOOD CHOLESTEROL INCREASED [None]
  - BURSITIS [None]
  - DEEP VEIN THROMBOSIS [None]
  - DELUSION [None]
  - DEPRESSION [None]
  - FEMUR FRACTURE [None]
  - FIBROCYSTIC BREAST DISEASE [None]
  - GASTROOESOPHAGEAL REFLUX DISEASE [None]
  - HALLUCINATION, VISUAL [None]
  - HYPERLIPIDAEMIA [None]
  - HYPOTHYROIDISM [None]
  - INSOMNIA [None]
  - ISCHAEMIC CEREBRAL INFARCTION [None]
  - LEUKOCYTOSIS [None]
  - MITRAL VALVE PROLAPSE [None]
  - OBSESSIVE-COMPULSIVE DISORDER [None]
  - OEDEMA PERIPHERAL [None]
  - PARKINSONISM [None]
  - PROTEINURIA [None]
  - SINUS TACHYCARDIA [None]
  - TONSILLAR DISORDER [None]
  - TREATMENT NONCOMPLIANCE [None]
  - TREMOR [None]
  - TYPE 2 DIABETES MELLITUS [None]
  - WRIST FRACTURE [None]
